FAERS Safety Report 11445415 (Version 1)
Quarter: 2015Q3

REPORT INFORMATION
  Report Type: Spontaneous
  Country: US (occurrence: None)
  Receive Date: 20150901
  Receipt Date: 20150901
  Transmission Date: 20151125
  Serious: Yes (Other)
  Sender: FDA-Public Use
  Company Number: None

PATIENT
  Age: 64 Year
  Sex: Female
  Weight: 70.31 kg

DRUGS (8)
  1. RESTASIS [Concomitant]
     Active Substance: CYCLOSPORINE
  2. SULFAMETHOXAZOLE-TMP DS [Suspect]
     Active Substance: SULFAMETHOXAZOLE\TRIMETHOPRIM
     Indication: EAR INFECTION
     Route: 048
     Dates: start: 20150820, end: 20150828
  3. BENICAR [Concomitant]
     Active Substance: OLMESARTAN MEDOXOMIL
  4. CRESTOR [Concomitant]
     Active Substance: ROSUVASTATIN CALCIUM
  5. POTASSIUM [Concomitant]
     Active Substance: POTASSIUM
  6. ZYRTEC [Concomitant]
     Active Substance: CETIRIZINE HYDROCHLORIDE
  7. CENTRUM SILVER [Concomitant]
     Active Substance: VITAMINS
  8. OMNEPRAZOLE [Concomitant]

REACTIONS (6)
  - Product substitution issue [None]
  - Aggression [None]
  - Diarrhoea [None]
  - Nausea [None]
  - Urticaria [None]
  - Vomiting [None]

NARRATIVE: CASE EVENT DATE: 20150828
